FAERS Safety Report 9796487 (Version 2)
Quarter: 2015Q2

REPORT INFORMATION
  Report Type: Spontaneous
  Country: US (occurrence: US)
  Receive Date: 20140103
  Receipt Date: 20150402
  Transmission Date: 20150821
  Serious: Yes (Other)
  Sender: FDA-Public Use
  Company Number: US-GLAXOSMITHKLINE-A1055207A

PATIENT
  Sex: Female

DRUGS (1)
  1. RYTHMOL SR [Suspect]
     Active Substance: PROPAFENONE HYDROCHLORIDE
     Indication: ATRIAL FIBRILLATION
     Dosage: 325 MG, U
     Route: 065
     Dates: start: 20090206

REACTIONS (3)
  - Upper respiratory tract infection [Not Recovered/Not Resolved]
  - Atrial fibrillation [Unknown]
  - Surgery [Unknown]
